FAERS Safety Report 9166906 (Version 2)
Quarter: 2013Q1

REPORT INFORMATION
  Report Type: Spontaneous
  Country: CA (occurrence: CA)
  Receive Date: 20130318
  Receipt Date: 20130318
  Transmission Date: 20140127
  Serious: Yes (Other)
  Sender: FDA-Public Use
  Company Number: PHHY2013CA023967

PATIENT
  Age: 87 Year
  Sex: Female

DRUGS (1)
  1. BISOPROLOL [Suspect]

REACTIONS (3)
  - Convulsion [Unknown]
  - Chromatopsia [Unknown]
  - Product quality issue [None]
